FAERS Safety Report 8607762-8 (Version None)
Quarter: 2012Q3

REPORT INFORMATION
  Report Type: 
  Country: None (occurrence: None)
  Receive Date: 20120821
  Receipt Date: 20120816
  Transmission Date: 20120928
  Serious: Yes (Hospitalization, Other)
  Sender: FDA-Public Use
  Company Number: PHHY2012VE058013

PATIENT
  Sex: Female

DRUGS (6)
  1. CALCIUM CARBONATE [Concomitant]
     Indication: OSTEOPOROSIS
  2. MAGNESIUM [Concomitant]
     Indication: OSTEOARTHRITIS
     Dosage: 1 DF, ONCE/SINGLE
     Route: 048
  3. MAGNESIUM [Concomitant]
     Indication: OSTEOPOROSIS
  4. ZOLEDRONOC ACID [Suspect]
     Indication: OSTEOPOROSIS
     Dosage: 5 MG/YEAR
     Route: 042
     Dates: start: 20110401
  5. ZOLEDRONOC ACID [Suspect]
     Dosage: 5 MG/YEAR
     Route: 042
     Dates: start: 20120501
  6. CALCIUM CARBONATE [Concomitant]
     Indication: OSTEOARTHRITIS
     Dosage: 1 DF, ONCE/SINGLE
     Route: 048

REACTIONS (3)
  - DEHYDRATION [None]
  - IRRITABLE BOWEL SYNDROME [None]
  - DIARRHOEA [None]
